FAERS Safety Report 23350095 (Version 11)
Quarter: 2024Q4

REPORT INFORMATION
  Report Type: Spontaneous
  Country: CA (occurrence: CA)
  Receive Date: 20231229
  Receipt Date: 20241004
  Transmission Date: 20250115
  Serious: Yes (Hospitalization, Other)
  Sender: CELLTRION
  Company Number: CA-CELLTRION INC.-2023CA013853

PATIENT

DRUGS (13)
  1. INFLECTRA [Suspect]
     Active Substance: INFLIXIMAB-DYYB
     Indication: Pyoderma gangrenosum
     Dosage: 400 MG, INDUCTION WEEK 6 THEN MAINTENANCE EVERY 8 WEEKS
     Route: 042
  2. INFLECTRA [Suspect]
     Active Substance: INFLIXIMAB-DYYB
     Dosage: 400 MG, INDUCTION WEEK 6 THEN MAINTENANCE EVERY 8 WEEKS
     Route: 042
     Dates: start: 20230607
  3. INFLECTRA [Suspect]
     Active Substance: INFLIXIMAB-DYYB
     Dosage: 400 MG, INDUCTION WEEK 6 THEN MAINTENANCE EVERY 8 WEEKS
     Route: 042
     Dates: start: 20230620
  4. INFLECTRA [Suspect]
     Active Substance: INFLIXIMAB-DYYB
     Dosage: 400 MG, EVERY 4 WEEKS
     Route: 042
     Dates: start: 20230720
  5. INFLECTRA [Suspect]
     Active Substance: INFLIXIMAB-DYYB
     Dosage: 400 MG, 0,2, 6 THEN EVERY 8 WEEKS
     Route: 042
     Dates: start: 20230913
  6. INFLECTRA [Suspect]
     Active Substance: INFLIXIMAB-DYYB
     Dosage: 400 MG, EVERY 4 WEEKS
     Route: 042
     Dates: start: 20231016
  7. INFLECTRA [Suspect]
     Active Substance: INFLIXIMAB-DYYB
     Dosage: 400 MG, REINDUCTION WEEK 2, 6 THEN MAINTENANCE EVERY 4 WEEKS. HOSPITAL START IN DEC2023
     Route: 042
     Dates: start: 202312
  8. INFLECTRA [Suspect]
     Active Substance: INFLIXIMAB-DYYB
     Dosage: 400 MG, REINDUCTION WEEK 2, 6 THEN MAINTENANCE EVERY 4 WEEKS
     Route: 042
     Dates: start: 20240201
  9. INFLECTRA [Suspect]
     Active Substance: INFLIXIMAB-DYYB
     Dosage: 400 MG, REINDUCTION WEEK 2, 6 THEN MAINTENANCE EVERY 4 WEEKS
     Route: 042
     Dates: start: 20240229
  10. INFLECTRA [Suspect]
     Active Substance: INFLIXIMAB-DYYB
     Dosage: 400 MG, REINDUCTION WEEK 2, 6 THEN MAINTENANCE EVERY 4 WEEKS
     Route: 042
     Dates: start: 20240325
  11. ESOMEPRAZOLE [Concomitant]
     Active Substance: ESOMEPRAZOLE
     Dosage: UNK
  12. MORPHINE [Concomitant]
     Active Substance: MORPHINE
     Dosage: UNK
  13. PREDNISONE [Concomitant]
     Active Substance: PREDNISONE
     Dosage: UNK

REACTIONS (19)
  - Skin disorder [Unknown]
  - Nasal disorder [Unknown]
  - Ear disorder [Unknown]
  - Oropharyngeal discomfort [Unknown]
  - Deafness [Recovered/Resolved with Sequelae]
  - Blindness [Recovered/Resolved with Sequelae]
  - Pyoderma [Recovered/Resolved with Sequelae]
  - Visual impairment [Unknown]
  - Post procedural complication [Unknown]
  - Ear infection [Recovering/Resolving]
  - Lower respiratory tract infection viral [Unknown]
  - Eye discharge [Unknown]
  - Weight decreased [Unknown]
  - Eye pain [Unknown]
  - Eye infection [Unknown]
  - Oral herpes [Not Recovered/Not Resolved]
  - Malaise [Unknown]
  - Deformity [Unknown]
  - Off label use [Unknown]

NARRATIVE: CASE EVENT DATE: 20230101
